FAERS Safety Report 8056624-6 (Version None)
Quarter: 2012Q1

REPORT INFORMATION
  Report Type: 
  Country: None (occurrence: None)
  Receive Date: 20120119
  Receipt Date: 20120110
  Transmission Date: 20120608
  Serious: Yes (Other)
  Sender: FDA-Public Use
  Company Number: CHPA2012US000878

PATIENT
  Age: 44 Year
  Sex: Male

DRUGS (1)
  1. EXCEDRIN EXTRA STRENGTH CAPLETS [Suspect]
     Indication: PAIN
     Dosage: 2 DF, PRN
     Route: 048
     Dates: end: 20120109

REACTIONS (4)
  - LEUKAEMIA [None]
  - IDIOPATHIC THROMBOCYTOPENIC PURPURA [None]
  - CHRONIC OBSTRUCTIVE PULMONARY DISEASE [None]
  - TABLET PHYSICAL ISSUE [None]
